FAERS Safety Report 21377524 (Version 2)
Quarter: 2022Q4

REPORT INFORMATION
  Report Type: Report from Study
  Country: US (occurrence: US)
  Receive Date: 20220926
  Receipt Date: 20221020
  Transmission Date: 20230113
  Serious: Yes (Hospitalization, Other)
  Sender: FDA-Public Use
  Company Number: US-EXELIXIS-XL18422055792

PATIENT
  Age: 69 Year
  Sex: Female

DRUGS (3)
  1. IPILIMUMAB [Suspect]
     Active Substance: IPILIMUMAB
     Indication: Metastatic malignant melanoma
     Dosage: 1 MG/KG, Q3WEEKS
     Route: 042
     Dates: start: 20220902, end: 20220926
  2. NIVOLUMAB [Suspect]
     Active Substance: NIVOLUMAB
     Indication: Metastatic malignant melanoma
     Route: 042
     Dates: start: 20220902, end: 20220926
  3. CABOZANTINIB [Suspect]
     Active Substance: CABOZANTINIB
     Indication: Metastatic malignant melanoma
     Dosage: 40 MG, QD
     Route: 048
     Dates: start: 20220902, end: 20220926

REACTIONS (5)
  - Pyrexia [Unknown]
  - Supraventricular tachycardia [Unknown]
  - Cardiac failure [Recovering/Resolving]
  - Myocarditis [Unknown]
  - Sepsis [Unknown]

NARRATIVE: CASE EVENT DATE: 20220911
